FAERS Safety Report 7897227-3 (Version None)
Quarter: 2011Q4

REPORT INFORMATION
  Report Type: 
  Country: None (occurrence: None)
  Receive Date: 20111107
  Receipt Date: 20111028
  Transmission Date: 20120403
  Serious: Yes (Hospitalization, Other)
  Sender: FDA-Public Use
  Company Number: US-ELI_LILLY_AND_COMPANY-US201111000445

PATIENT
  Sex: Male
  Weight: 72.562 kg

DRUGS (10)
  1. HUMALOG [Suspect]
     Dosage: 12 U, UNK
  2. HUMALOG [Suspect]
     Dosage: 12 U, UNK
  3. HUMALOG [Suspect]
     Dosage: 16 U, UNK
  4. HUMALOG [Suspect]
     Dosage: 8 U, UNK
     Dates: start: 19950101
  5. HUMALOG [Suspect]
     Dosage: 16 U, UNK
  6. HUMALOG [Suspect]
     Dosage: 8 U, UNK
  7. HUMALOG [Suspect]
     Indication: DIABETES MELLITUS
     Dosage: 8 U, UNK
  8. HUMALOG [Suspect]
     Dosage: 16 U, UNK
  9. HUMALOG [Suspect]
     Dosage: 12 U, UNK
  10. LANTUS [Concomitant]
     Dosage: 20 U, UNK

REACTIONS (3)
  - CARDIOVASCULAR DISORDER [None]
  - WEIGHT DECREASED [None]
  - CORONARY ARTERY BYPASS [None]
